FAERS Safety Report 24397539 (Version 2)
Quarter: 2024Q4

REPORT INFORMATION
  Report Type: Spontaneous
  Country: US (occurrence: US)
  Receive Date: 20241004
  Receipt Date: 20241025
  Transmission Date: 20250114
  Serious: No
  Sender: INCYTE
  Company Number: US-INCYTE CORPORATION-2024IN010083

PATIENT

DRUGS (2)
  1. JAKAFI [Suspect]
     Active Substance: RUXOLITINIB
     Indication: Polycythaemia vera
     Dosage: 5 MILLIGRAM, BID
     Route: 048
     Dates: start: 20240904
  2. BESREMI [ROPEGINTERFERON ALFA-2B] [Concomitant]
     Indication: Product used for unknown indication
     Dosage: 500 MCG/ML
     Route: 065

REACTIONS (4)
  - Asthenia [Unknown]
  - Anxiety [Unknown]
  - Asthma [Unknown]
  - Peripheral swelling [Unknown]
